FAERS Safety Report 9466453 (Version 1)
Quarter: 2013Q3

REPORT INFORMATION
  Report Type: Report from Study
  Country: US (occurrence: US)
  Receive Date: 20130820
  Receipt Date: 20130820
  Transmission Date: 20140515
  Serious: Yes (Other)
  Sender: FDA-Public Use
  Company Number: US-ASTRAZENECA-2013SE62869

PATIENT
  Age: 67 Year
  Sex: Female
  Weight: 81.6 kg

DRUGS (8)
  1. TOPROL XL [Suspect]
     Indication: HEART RATE INCREASED
     Route: 048
     Dates: start: 2010
  2. ARIMIDEX [Suspect]
     Indication: BREAST CANCER FEMALE
     Dosage: DAILY
     Route: 048
     Dates: start: 2012, end: 201306
  3. ADVAIR [Concomitant]
     Indication: CHRONIC OBSTRUCTIVE PULMONARY DISEASE
     Dosage: 250 MG, 2 PUFFS BID
  4. PROVENTIL [Concomitant]
     Indication: CHRONIC OBSTRUCTIVE PULMONARY DISEASE
     Dosage: UNKNOWN PUFFS PRN
  5. CALCIUM [Concomitant]
     Indication: BONE DISORDER
     Dates: start: 2012
  6. VITAMIN D [Concomitant]
     Indication: BONE DISORDER
     Dosage: 1000 UNITS DAILY
     Dates: start: 2012
  7. DOCASAPE SODIUM [Concomitant]
     Indication: LAXATIVE SUPPORTIVE CARE
  8. LEVOTHYROID [Concomitant]
     Indication: THYROID DISORDER
     Dates: start: 2000

REACTIONS (11)
  - Atrial fibrillation [Unknown]
  - Anxiety [Unknown]
  - Hypertension [Unknown]
  - Pulmonary embolism [Unknown]
  - Bladder cancer [Unknown]
  - Dyspnoea [Unknown]
  - Blood pressure increased [Unknown]
  - Condition aggravated [Unknown]
  - Sensitivity to weather change [Unknown]
  - Blood cholesterol increased [Unknown]
  - Drug dose omission [Unknown]
